FAERS Safety Report 14173312 (Version 1)
Quarter: 2017Q4

REPORT INFORMATION
  Report Type: Spontaneous
  Country: GB (occurrence: GB)
  Receive Date: 20171109
  Receipt Date: 20171109
  Transmission Date: 20180321
  Serious: Yes (Other)
  Sender: FDA-Public Use
  Company Number: GB-ACCORD-060794

PATIENT
  Age: 33 Year
  Sex: Female

DRUGS (2)
  1. TACROLIMUS. [Suspect]
     Active Substance: TACROLIMUS
     Indication: PRODUCT USED FOR UNKNOWN INDICATION
  2. DAPSONE. [Suspect]
     Active Substance: DAPSONE
     Indication: PROPHYLAXIS
     Dosage: A DOSE OF DAPSONE ON DAY 1 AND 2 POST-TRANSPLANT

REACTIONS (1)
  - Methaemoglobinaemia [Recovering/Resolving]
